FAERS Safety Report 6826020-5 (Version None)
Quarter: 2010Q3

REPORT INFORMATION
  Report Type: 
  Country: None (occurrence: None)
  Receive Date: 20100707
  Receipt Date: 20100707
  Transmission Date: 20110219
  Serious: Yes (Other)
  Sender: FDA-Public Use
  Company Number: None

PATIENT
  Age: 76 Year
  Sex: Female
  Weight: 71.6683 kg

DRUGS (2)
  1. CATAPRES-TTS-3 [Suspect]
     Indication: HYPERTENSION
     Dosage: 0.3/24 DFS BOEH CHANGE WEEKLY
  2. CLONIDINE HCL [Suspect]
     Indication: HYPERTENSION
     Dosage: 3/24 H - 0.3 MG CHANGE WEEKLY

REACTIONS (2)
  - HYPERHIDROSIS [None]
  - PRODUCT ADHESION ISSUE [None]
